FAERS Safety Report 5795616-4 (Version None)
Quarter: 2008Q2

REPORT INFORMATION
  Report Type: 
  Country: None (occurrence: None)
  Receive Date: 20080630
  Receipt Date: 20080623
  Transmission Date: 20081010
  Serious: Yes (Hospitalization, Other)
  Sender: FDA-Public Use
  Company Number: TH-PFIZER INC-2008052383

PATIENT
  Age: 60 Year
  Sex: Male

DRUGS (5)
  1. LYRICA [Suspect]
     Indication: BASAL GANGLIA HAEMORRHAGE
     Route: 048
     Dates: start: 20080613, end: 20080601
  2. NOOTROPIL [Concomitant]
     Route: 048
  3. NEUROBION [Concomitant]
     Route: 048
  4. BLOPRESS [Concomitant]
     Route: 048
  5. AMLODIPINE [Concomitant]
     Route: 048

REACTIONS (3)
  - ANAPHYLACTIC REACTION [None]
  - ANGIOEDEMA [None]
  - RASH ERYTHEMATOUS [None]
